FAERS Safety Report 13143208 (Version 1)
Quarter: 2017Q1

REPORT INFORMATION
  Report Type: Spontaneous
  Country: US (occurrence: US)
  Receive Date: 20170123
  Receipt Date: 20170123
  Transmission Date: 20170428
  Serious: No
  Sender: FDA-Public Use
  Company Number: None

PATIENT
  Age: 50 Year
  Sex: Female

DRUGS (1)
  1. IBRANCE [Suspect]
     Active Substance: PALBOCICLIB
     Indication: BREAST CANCER FEMALE
     Dosage: DALLY FOR 3 WEEKS ON,?THEN 1WEEK OFF?
     Route: 048

REACTIONS (3)
  - Hot flush [None]
  - Feeling abnormal [None]
  - Alopecia [None]

NARRATIVE: CASE EVENT DATE: 20161014
